FAERS Safety Report 20212459 (Version 1)
Quarter: 2021Q4

REPORT INFORMATION
  Report Type: Spontaneous
  Country: GB (occurrence: GB)
  Receive Date: 20211221
  Receipt Date: 20211221
  Transmission Date: 20220303
  Serious: Yes (Hospitalization, Other)
  Sender: FDA-Public Use
  Company Number: None

PATIENT
  Age: 52 Year
  Sex: Male

DRUGS (1)
  1. NAPROXEN [Suspect]
     Active Substance: NAPROXEN
     Indication: Back pain
     Dosage: 250 MILLIGRAM, TID (250MG TDS)
     Dates: end: 20211213

REACTIONS (5)
  - Duodenal ulcer haemorrhage [Recovering/Resolving]
  - Abdominal distension [Unknown]
  - Melaena [Unknown]
  - Duodenitis [Unknown]
  - Oesophageal ulcer [Unknown]

NARRATIVE: CASE EVENT DATE: 20211113
